FAERS Safety Report 9962657 (Version 2)
Quarter: 2014Q1

REPORT INFORMATION
  Report Type: Spontaneous
  Country: US (occurrence: US)
  Receive Date: 20140305
  Receipt Date: 20140305
  Transmission Date: 20141002
  Serious: No
  Sender: FDA-Public Use
  Company Number: US-ABBVIE-13P-163-1096013-00

PATIENT
  Age: 56 Year
  Sex: Female
  Weight: 89.44 kg

DRUGS (10)
  1. HUMIRA [Suspect]
     Indication: PSORIASIS
     Dates: start: 2007, end: 201302
  2. HUMIRA [Suspect]
     Indication: PSORIATIC ARTHROPATHY
     Dates: start: 20130406
  3. CITALOPRAM [Suspect]
     Indication: DEPRESSION
  4. COREG [Concomitant]
     Indication: BLOOD PRESSURE
  5. HYDROCHLOROTHIAZIDE [Concomitant]
     Indication: BLOOD PRESSURE
  6. DIOVAN [Concomitant]
     Indication: BLOOD PRESSURE
  7. PRAVASTATIN [Concomitant]
     Indication: BLOOD CHOLESTEROL INCREASED
  8. POTASSIUM [Concomitant]
     Indication: RENAL DISORDER
  9. NEXIUM [Concomitant]
     Indication: GASTRIC DISORDER
  10. CARDIZEM [Concomitant]
     Indication: PRODUCT USED FOR UNKNOWN INDICATION

REACTIONS (32)
  - Gastrointestinal sounds abnormal [Not Recovered/Not Resolved]
  - Psoriasis [Not Recovered/Not Resolved]
  - Psoriatic arthropathy [Not Recovered/Not Resolved]
  - Diarrhoea [Not Recovered/Not Resolved]
  - Abdominal pain [Not Recovered/Not Resolved]
  - Feeling of body temperature change [Not Recovered/Not Resolved]
  - Fatigue [Not Recovered/Not Resolved]
  - Facial pain [Not Recovered/Not Resolved]
  - Ear pain [Not Recovered/Not Resolved]
  - Nasal congestion [Not Recovered/Not Resolved]
  - Headache [Not Recovered/Not Resolved]
  - Abasia [Recovered/Resolved]
  - Dizziness [Recovered/Resolved]
  - Sneezing [Recovered/Resolved]
  - Toothache [Unknown]
  - Tinea infection [Recovered/Resolved]
  - Sinusitis [Unknown]
  - Local swelling [Unknown]
  - Pain in extremity [Unknown]
  - Gait disturbance [Unknown]
  - Psoriatic arthropathy [Unknown]
  - Psoriasis [Unknown]
  - Neuralgia [Recovered/Resolved]
  - Tooth fracture [Unknown]
  - Facial pain [Unknown]
  - Somnolence [Recovering/Resolving]
  - Depression [Recovering/Resolving]
  - Hyperhidrosis [Unknown]
  - Dizziness [Unknown]
  - Increased upper airway secretion [Unknown]
  - Cough [Unknown]
  - Hypersensitivity [Unknown]
